FAERS Safety Report 4896930-7 (Version None)
Quarter: 2006Q1

REPORT INFORMATION
  Report Type: 
  Country: None (occurrence: None)
  Receive Date: 20060127
  Receipt Date: 20060118
  Transmission Date: 20060701
  Serious: Yes (Hospitalization)
  Sender: FDA-Public Use
  Company Number: 2004004484

PATIENT
  Age: 70 Year
  Sex: Female

DRUGS (2)
  1. LIPITOR [Suspect]
     Indication: ILL-DEFINED DISORDER
     Dosage: 80 MG (1 IN 1 D), ORAL
     Route: 048
     Dates: start: 20010101, end: 20030901
  2. ASPIRIN [Concomitant]

REACTIONS (6)
  - ALOPECIA [None]
  - FIBROMYALGIA [None]
  - HYPOAESTHESIA [None]
  - MUSCULAR WEAKNESS [None]
  - MYALGIA [None]
  - PRURITUS [None]
